FAERS Safety Report 12783757 (Version 1)
Quarter: 2016Q3

REPORT INFORMATION
  Report Type: Spontaneous
  Country: US (occurrence: US)
  Receive Date: 20160927
  Receipt Date: 20160927
  Transmission Date: 20161109
  Serious: Yes (Other)
  Sender: FDA-Public Use
  Company Number: US-BAYER-2016-184745

PATIENT
  Sex: Male

DRUGS (1)
  1. CIPRO [Suspect]
     Active Substance: CIPROFLOXACIN HYDROCHLORIDE
     Indication: GASTROINTESTINAL DISORDER
     Dosage: UNK (6 OR 7 DAYS DURING THE 2ND WEEK OF AUGUST)
     Route: 048
     Dates: start: 201608, end: 201608

REACTIONS (2)
  - Tendonitis [Unknown]
  - Tendon rupture [Unknown]
